FAERS Safety Report 7526296-5 (Version None)
Quarter: 2011Q2

REPORT INFORMATION
  Report Type: 
  Country: None (occurrence: None)
  Receive Date: 20110606
  Receipt Date: 20110525
  Transmission Date: 20111010
  Serious: Yes (Hospitalization, Other)
  Sender: FDA-Public Use
  Company Number: US-BAYER-200941465NA

PATIENT
  Age: 21 Year
  Sex: Female
  Weight: 54.545 kg

DRUGS (19)
  1. DROSPIRENONE AND ETHINYL ESTRADIOL [Suspect]
     Indication: ABDOMINAL PAIN
     Dosage: UNK
     Route: 065
     Dates: start: 20081001, end: 20091001
  2. ALBUTEROL [Concomitant]
     Indication: PRODUCT USED FOR UNKNOWN INDICATION
     Route: 055
     Dates: start: 20090810
  3. PAXIL [Concomitant]
  4. YASMIN [Suspect]
     Indication: ABDOMINAL PAIN
     Dosage: UNK
     Route: 048
     Dates: start: 20070516, end: 20081001
  5. PREDNISONE [Concomitant]
  6. XANAX [Concomitant]
     Dosage: 0.25 MG, UNK
  7. YASMIN [Suspect]
     Indication: MENORRHAGIA
  8. ADVAIR DISKUS 100/50 [Concomitant]
     Indication: PRODUCT USED FOR UNKNOWN INDICATION
     Dosage: 500/50 DISKUS
     Route: 065
     Dates: start: 20090527
  9. SINGULAIR [Concomitant]
     Indication: PRODUCT USED FOR UNKNOWN INDICATION
     Dosage: 10 MG, QD
     Route: 065
     Dates: start: 20090525
  10. MORPHINE [Concomitant]
  11. DEMEROL [Concomitant]
     Route: 042
  12. HYOSCYAMINE [Concomitant]
     Indication: PRODUCT USED FOR UNKNOWN INDICATION
     Dates: start: 20090709
  13. HYOSCYAMINE SULFATE [Concomitant]
     Route: 065
     Dates: start: 20090709
  14. ZYRTEC-D 12 HOUR [Concomitant]
  15. PAROXETINE [Concomitant]
     Dosage: 30 MG, QD
  16. TRIAMCINOLONE [Concomitant]
     Indication: PRODUCT USED FOR UNKNOWN INDICATION
     Route: 065
     Dates: start: 20090713
  17. HYOSCYAMINE [Concomitant]
     Indication: PAIN
  18. ALBUTEROL [Concomitant]
     Route: 055
     Dates: start: 20090810
  19. ZOLPIDEM [Concomitant]

REACTIONS (8)
  - GASTRITIS [None]
  - HIATUS HERNIA [None]
  - BILIARY DYSKINESIA [None]
  - CHOLESTEROSIS [None]
  - CHOLELITHIASIS [None]
  - ABDOMINAL PAIN [None]
  - NAUSEA [None]
  - WEIGHT DECREASED [None]
